FAERS Safety Report 12719184 (Version 2)
Quarter: 2016Q4

REPORT INFORMATION
  Report Type: Spontaneous
  Country: US (occurrence: US)
  Receive Date: 20160907
  Receipt Date: 20161031
  Transmission Date: 20170207
  Serious: No
  Sender: FDA-Public Use
  Company Number: US-JNJFOC-20160811029

PATIENT
  Sex: Male
  Weight: 77.11 kg

DRUGS (3)
  1. LYRICA [Concomitant]
     Active Substance: PREGABALIN
     Indication: NEURALGIA
     Route: 048
  2. LORAZEPAM. [Concomitant]
     Active Substance: LORAZEPAM
     Indication: NEURALGIA
     Route: 048
  3. DURAGESIC [Suspect]
     Active Substance: FENTANYL
     Indication: ARACHNOIDITIS
     Route: 062
     Dates: start: 2006

REACTIONS (4)
  - Product adhesion issue [Unknown]
  - Withdrawal syndrome [Unknown]
  - Visual acuity reduced [Unknown]
  - Product label issue [Unknown]
